FAERS Safety Report 5523554-0 (Version None)
Quarter: 2007Q4

REPORT INFORMATION
  Report Type: 
  Country: None (occurrence: None)
  Receive Date: 20071121
  Receipt Date: 20071109
  Transmission Date: 20080405
  Serious: Yes (Hospitalization)
  Sender: FDA-Public Use
  Company Number: GR-GENENTECH-249138

PATIENT
  Age: 64 Year
  Sex: Male
  Weight: 73 kg

DRUGS (4)
  1. AVASTIN [Suspect]
     Indication: COLORECTAL CANCER
     Dosage: 360 MG, UNK
     Route: 042
  2. IRINOTECAN HCL [Concomitant]
     Indication: COLORECTAL CANCER
  3. LEUCOVORIN CALCIUM [Concomitant]
     Indication: COLORECTAL CANCER
  4. FLUOROURACIL [Concomitant]
     Indication: COLORECTAL CANCER

REACTIONS (4)
  - CHILLS [None]
  - GASTROINTESTINAL SOUNDS ABNORMAL [None]
  - ILEUS [None]
  - PYREXIA [None]
